FAERS Safety Report 21032769 (Version 1)
Quarter: 2022Q3

REPORT INFORMATION
  Report Type: Spontaneous
  Country: CZ (occurrence: CZ)
  Receive Date: 20220701
  Receipt Date: 20220701
  Transmission Date: 20221027
  Serious: Yes (Other)
  Sender: FDA-Public Use
  Company Number: CZ-NOVARTISPH-PHHY2019CZ155221

PATIENT
  Age: 47 Year
  Sex: Female
  Weight: 65 kg

DRUGS (10)
  1. METHOTREXATE [Suspect]
     Active Substance: METHOTREXATE
     Indication: Dermatitis atopic
     Dosage: 5 MG, QW/ SUBSEQUENTLY INCREASING DOSE FROM 5 MG/WEEKLY TO 12.5MG/WEEKLY SINCE 11/2018
     Route: 065
     Dates: start: 201803
  2. METHOTREXATE [Suspect]
     Active Substance: METHOTREXATE
     Dosage: 12.5 MG, QW
     Route: 065
     Dates: start: 201811
  3. METHOTREXATE [Suspect]
     Active Substance: METHOTREXATE
     Dosage: 10 MG, QW
     Route: 065
  4. PREDNISONE [Suspect]
     Active Substance: PREDNISONE
     Indication: Dermatitis atopic
     Dosage: 10 MG, QD
     Route: 048
  5. PREDNISONE [Suspect]
     Active Substance: PREDNISONE
     Dosage: 20 MG
     Route: 048
     Dates: start: 201512
  6. RANITIDINE [Concomitant]
     Active Substance: RANITIDINE
     Indication: Product used for unknown indication
     Dosage: 1 UNK, QD
     Route: 048
  7. BILASTINE [Concomitant]
     Active Substance: BILASTINE
     Indication: Dermatitis atopic
     Dosage: 1 DOSAGE FORM, QD
     Route: 048
  8. BISULEPIN [Concomitant]
     Active Substance: BISULEPIN
     Indication: Dermatitis atopic
     Dosage: 1 DOSAGE FORM, QD
     Route: 048
  9. CALCIUM\CHOLECALCIFEROL [Concomitant]
     Active Substance: CALCIUM\CHOLECALCIFEROL
     Indication: Product used for unknown indication
     Dosage: 1 DOSAGE FORM, QD
     Route: 048
  10. CYCLOSPORINE [Concomitant]
     Active Substance: CYCLOSPORINE
     Indication: Product used for unknown indication
     Dosage: UNK
     Route: 065

REACTIONS (13)
  - Pertussis [Recovered/Resolved]
  - Eye disorder [Recovered/Resolved]
  - Eye pruritus [Recovered/Resolved]
  - Condition aggravated [Unknown]
  - Skin disorder [Unknown]
  - Eye irritation [Recovered/Resolved]
  - Oral herpes [Recovered/Resolved]
  - Eczema [Recovered/Resolved]
  - Conjunctivitis [Recovering/Resolving]
  - Cough [Unknown]
  - Injection site pruritus [Recovered/Resolved]
  - Injection site erythema [Recovered/Resolved]
  - Incorrect dose administered [Unknown]

NARRATIVE: CASE EVENT DATE: 20190501
